FAERS Safety Report 8571217-X (Version None)
Quarter: 2012Q3

REPORT INFORMATION
  Report Type: 
  Country: None (occurrence: None)
  Receive Date: 20120806
  Receipt Date: 20120802
  Transmission Date: 20120928
  Serious: Yes (Other)
  Sender: FDA-Public Use
  Company Number: FR-MSD-1207FRA010981

PATIENT

DRUGS (4)
  1. METFORMIN HYDROCHLORIDE [Concomitant]
     Dosage: UNK
     Route: 048
  2. LEVOTHYROXINE SODIUM [Concomitant]
     Dosage: 1 DF, QD
  3. JANUVIA [Suspect]
     Indication: TYPE 2 DIABETES MELLITUS
     Dosage: 1 DF, QD
     Route: 048
     Dates: start: 20110901, end: 20120306
  4. MOPRAL (OMEPRAZOLE SODIUM) [Concomitant]
     Dosage: UNK
     Route: 048

REACTIONS (1)
  - COUGH [None]
